FAERS Safety Report 4889604-X (Version None)
Quarter: 2006Q1

REPORT INFORMATION
  Report Type: 
  Country: None (occurrence: None)
  Receive Date: 20060120
  Receipt Date: 20060120
  Transmission Date: 20060701
  Serious: Yes (Hospitalization, Other)
  Sender: FDA-Public Use
  Company Number: None

PATIENT
  Sex: Female
  Weight: 88.6 kg

DRUGS (13)
  1. CISPLATIN [Suspect]
     Indication: ENDOMETRIAL CANCER
     Dosage: SEE IMAGE
     Route: 042
     Dates: start: 20051222, end: 20051222
  2. G-CSF FILGRASTIM, AMGEN [Suspect]
     Dosage: SEE IMAGE
     Dates: start: 20051224, end: 20051224
  3. G-CSF FILGRASTIM, AMGEN [Suspect]
     Dosage: SEE IMAGE
     Dates: start: 20051222
  4. TAXOL [Suspect]
     Dosage: SEE IMAGE
     Route: 042
     Dates: start: 20051223, end: 20051223
  5. TAXOL [Suspect]
     Dosage: SEE IMAGE
     Route: 042
     Dates: start: 20051222
  6. NOVOLOG [Concomitant]
  7. COUMADIN [Concomitant]
  8. HYDROMORPHONE HCL [Concomitant]
  9. LOMOTIL [Concomitant]
  10. SANDASTATIN [Concomitant]
  11. CINCTURE OF OPIUM [Concomitant]
  12. TOPROL-XL [Concomitant]
  13. VITAMIN B-12 [Concomitant]

REACTIONS (4)
  - BLOOD CALCIUM DECREASED [None]
  - MUSCULAR WEAKNESS [None]
  - PARAESTHESIA [None]
  - TREMOR [None]
